FAERS Safety Report 16404698 (Version 1)
Quarter: 2019Q2

REPORT INFORMATION
  Report Type: Spontaneous
  Country: US (occurrence: US)
  Receive Date: 20190607
  Receipt Date: 20190607
  Transmission Date: 20190711
  Serious: Yes (Death)
  Sender: FDA-Public Use
  Company Number: US-BAYER-2019-109188

PATIENT
  Age: 73 Year
  Sex: Male

DRUGS (24)
  1. MIRALAX [Suspect]
     Active Substance: POLYETHYLENE GLYCOL 3350
  2. ISOSORBIDE MONONITRATE. [Suspect]
     Active Substance: ISOSORBIDE MONONITRATE
  3. ATORVASTATIN [Suspect]
     Active Substance: ATORVASTATIN
  4. CLOZAPINE. [Suspect]
     Active Substance: CLOZAPINE
     Dosage: 25 MG, BID
  5. WARFARIN [Suspect]
     Active Substance: WARFARIN
  6. NITROGLYCERINE [Suspect]
     Active Substance: NITROGLYCERIN
  7. NICOTINE MINI [Suspect]
     Active Substance: NICOTINE
  8. DEPAKOTE [Suspect]
     Active Substance: DIVALPROEX SODIUM
     Dosage: 250MG QAM. 2250MG QHS FOR MORE THAN A YEAR AND A HALF
  9. PANTOPRAZOLE [Suspect]
     Active Substance: PANTOPRAZOLE
  10. TRAMADOL. [Suspect]
     Active Substance: TRAMADOL
  11. SIMETHICONE (DIMETHICONE) [Suspect]
     Active Substance: DIMETHICONE
  12. TRAZODONE [Suspect]
     Active Substance: TRAZODONE HYDROCHLORIDE
     Dosage: 50 MG, HS
  13. FUROSEMIDE. [Suspect]
     Active Substance: FUROSEMIDE
  14. SALBUTAMOL [Suspect]
     Active Substance: ALBUTEROL
  15. GUARDIAN NICOTINE PATCHES [Suspect]
     Active Substance: NICOTINE
  16. NIFEDIPINE. [Suspect]
     Active Substance: NIFEDIPINE
  17. DOCUSATE [Suspect]
     Active Substance: DOCUSATE
  18. PARACETAMOL [Suspect]
     Active Substance: ACETAMINOPHEN
  19. HALOPERIDOL. [Suspect]
     Active Substance: HALOPERIDOL
     Indication: AGITATION
     Dosage: 15 MG, BID WITH ANOTHER DRUG 5MGQ6HRS AS NEEDED
  20. METOPROLOL. [Suspect]
     Active Substance: METOPROLOL
  21. SENNOSIDE [SENNOSIDE A+B] [Suspect]
     Active Substance: SENNOSIDES A AND B
  22. CHOLECALCIFEROL [Suspect]
     Active Substance: CHOLECALCIFEROL
  23. CLOZAPINE. [Suspect]
     Active Substance: CLOZAPINE
     Dosage: 25 MG
  24. TAMSULOSIN [Suspect]
     Active Substance: TAMSULOSIN

REACTIONS (3)
  - Acute hepatic failure [Fatal]
  - Multiple organ dysfunction syndrome [Fatal]
  - Disseminated intravascular coagulation [Fatal]
